FAERS Safety Report 13985465 (Version 2)
Quarter: 2017Q4

REPORT INFORMATION
  Report Type: Spontaneous
  Country: US (occurrence: US)
  Receive Date: 20170919
  Receipt Date: 20171003
  Transmission Date: 20180321
  Serious: Yes (Disabling, Other)
  Sender: FDA-Public Use
  Company Number: US-AUROBINDO-AUR-APL-2017-40288

PATIENT
  Sex: Female

DRUGS (1)
  1. AMIODARONE HYDROCHLORIDE 200 MG TABLET [Suspect]
     Active Substance: AMIODARONE HYDROCHLORIDE
     Indication: ATRIAL FIBRILLATION
     Dosage: UNK
     Route: 065
     Dates: start: 201610

REACTIONS (18)
  - Blindness [Unknown]
  - Asthenia [Unknown]
  - Dyspnoea [Unknown]
  - Visual impairment [Unknown]
  - Eye pain [Unknown]
  - Cough [Unknown]
  - Optic ischaemic neuropathy [Unknown]
  - Optic neuropathy [Unknown]
  - Corneal disorder [Unknown]
  - Optic nerve injury [Unknown]
  - Retinal detachment [Unknown]
  - Eye irritation [Unknown]
  - Fatigue [Unknown]
  - Cataract [Unknown]
  - Vitreous floaters [Unknown]
  - Visual acuity reduced [Unknown]
  - Ill-defined disorder [Unknown]
  - Coordination abnormal [Unknown]

NARRATIVE: CASE EVENT DATE: 201610
